FAERS Safety Report 7701006-7 (Version None)
Quarter: 2011Q3

REPORT INFORMATION
  Report Type: 
  Country: None (occurrence: None)
  Receive Date: 20110822
  Receipt Date: 20110810
  Transmission Date: 20111222
  Serious: Yes (Hospitalization, Other)
  Sender: FDA-Public Use
  Company Number: US-BAYER-2010-006413

PATIENT
  Age: 29 Year
  Sex: Female
  Weight: 92.517 kg

DRUGS (7)
  1. TORADOL [Concomitant]
     Indication: PAIN
     Dosage: 30 MG, UNK
     Route: 042
     Dates: start: 20081215
  2. REGLAN [Concomitant]
     Indication: VOMITING
     Dosage: 10 MG, UNK
     Route: 042
     Dates: start: 20081215
  3. REGLAN [Concomitant]
     Indication: NAUSEA
  4. YAZ [Suspect]
     Indication: CONTRACEPTION
  5. YASMIN [Suspect]
     Indication: ACNE
     Dosage: UNK
     Route: 048
     Dates: start: 20070901, end: 20090901
  6. YAZ [Suspect]
     Indication: ACNE
     Dosage: UNK
     Route: 048
     Dates: start: 20070901, end: 20090901
  7. YASMIN [Suspect]
     Indication: CONTRACEPTION

REACTIONS (4)
  - CHOLELITHIASIS [None]
  - CHOLECYSTECTOMY [None]
  - CHOLECYSTITIS CHRONIC [None]
  - PAIN [None]
